FAERS Safety Report 7047303-2 (Version None)
Quarter: 2010Q4

REPORT INFORMATION
  Report Type: 
  Country: None (occurrence: None)
  Receive Date: 20101008
  Receipt Date: 20100929
  Transmission Date: 20110411
  Serious: Yes (Hospitalization)
  Sender: FDA-Public Use
  Company Number: 2010JP005336

PATIENT
  Age: 9 Year
  Sex: Male
  Weight: 24 kg

DRUGS (5)
  1. VESICARE [Suspect]
     Indication: HYPERTONIC BLADDER
     Dosage: 2.5 MG, UID/QD, ORAL, 2.5 MG, UID/QD, ORAL, 25 MG, UID/QD, 25 MG, UID/QD
     Route: 048
     Dates: start: 20090925, end: 20091115
  2. VESICARE [Suspect]
     Indication: HYPERTONIC BLADDER
     Dosage: 2.5 MG, UID/QD, ORAL, 2.5 MG, UID/QD, ORAL, 25 MG, UID/QD, 25 MG, UID/QD
     Route: 048
     Dates: start: 20090925, end: 20091115
  3. VESICARE [Suspect]
     Indication: HYPERTONIC BLADDER
     Dosage: 2.5 MG, UID/QD, ORAL, 2.5 MG, UID/QD, ORAL, 25 MG, UID/QD, 25 MG, UID/QD
     Route: 048
     Dates: start: 20091211
  4. VESICARE [Suspect]
     Indication: HYPERTONIC BLADDER
     Dosage: 2.5 MG, UID/QD, ORAL, 2.5 MG, UID/QD, ORAL, 25 MG, UID/QD, 25 MG, UID/QD
     Route: 048
     Dates: start: 20091211
  5. IMIPRAMINE HCL [Suspect]
     Indication: ENURESIS
     Dosage: 10 MG, UID/QD
     Dates: start: 20090724, end: 20090924

REACTIONS (2)
  - FAECES HARD [None]
  - ILEUS PARALYTIC [None]
